FAERS Safety Report 25136887 (Version 1)
Quarter: 2025Q1

REPORT INFORMATION
  Report Type: Spontaneous
  Country: IT (occurrence: IT)
  Receive Date: 20250328
  Receipt Date: 20250328
  Transmission Date: 20250409
  Serious: Yes (Hospitalization, Other)
  Sender: PHARMACEUTICAL ASSOC
  Company Number: IT-PAIPHARMA-2025-IT-000027

PATIENT
  Age: 13 Year
  Sex: Male

DRUGS (3)
  1. ETHOSUXIMIDE [Suspect]
     Active Substance: ETHOSUXIMIDE
     Indication: Seizure
  2. CLOBAZAM [Concomitant]
     Active Substance: CLOBAZAM
  3. VALPROATE [Concomitant]
     Active Substance: VALPROIC ACID

REACTIONS (2)
  - Vanishing bile duct syndrome [Recovered/Resolved]
  - Drug reaction with eosinophilia and systemic symptoms [Recovered/Resolved]
